FAERS Safety Report 18561204 (Version 1)
Quarter: 2020Q4

REPORT INFORMATION
  Report Type: Report from Study
  Country: US (occurrence: US)
  Receive Date: 20201130
  Receipt Date: 20201130
  Transmission Date: 20210114
  Serious: Yes (Other)
  Sender: FDA-Public Use
  Company Number: US-JNJFOC-20201139544

PATIENT
  Age: 45 Year
  Sex: Female

DRUGS (5)
  1. SPRAVATO [Suspect]
     Active Substance: ESKETAMINE
     Dosage: 56MG, 2 TOTAL DOSES
     Dates: start: 20200929, end: 20201003
  2. SPRAVATO [Suspect]
     Active Substance: ESKETAMINE
     Indication: DEPRESSION
     Dosage: 56MG, TOTAL OF 5 DOSES
     Dates: start: 20200909, end: 20200923
  3. SPRAVATO [Suspect]
     Active Substance: ESKETAMINE
     Dates: start: 20201117, end: 20201117
  4. SPRAVATO [Suspect]
     Active Substance: ESKETAMINE
     Dates: start: 20200928, end: 20200928
  5. SPRAVATO [Suspect]
     Active Substance: ESKETAMINE
     Dosage: 84MG, 5 TOTAL DOSES
     Dates: start: 20201006, end: 20201103

REACTIONS (3)
  - Panic attack [Recovered/Resolved]
  - Dissociation [Recovered/Resolved]
  - Sedation [Recovered/Resolved]

NARRATIVE: CASE EVENT DATE: 20201117
